FAERS Safety Report 9130452 (Version 2)
Quarter: 2013Q1

REPORT INFORMATION
  Report Type: Report from Study
  Country: US (occurrence: US)
  Receive Date: 20130301
  Receipt Date: 20130313
  Transmission Date: 20140127
  Serious: Yes (Life-Threatening, Hospitalization)
  Sender: FDA-Public Use
  Company Number: US-009507513-1302USA013090

PATIENT
  Age: 59 Year
  Sex: Female
  Weight: 39.2 kg

DRUGS (5)
  1. MK-7365 [Suspect]
     Indication: ACUTE MYELOID LEUKAEMIA
     Dosage: 200 MG/M2, QD ON DAYS 3-9
     Route: 048
     Dates: start: 20130207, end: 20130213
  2. VELIPARIB [Suspect]
     Indication: ACUTE MYELOID LEUKAEMIA
     Dosage: 200 MG, ONCE
     Route: 048
     Dates: start: 20130205, end: 20130205
  3. VELIPARIB [Suspect]
     Dosage: 200 MG, BID
     Route: 048
     Dates: start: 20130208, end: 20130214
  4. LEVOFLOXACIN [Concomitant]
  5. LINEZOLID [Concomitant]

REACTIONS (8)
  - Sepsis [Not Recovered/Not Resolved]
  - Device related infection [Not Recovered/Not Resolved]
  - Lung infection [Not Recovered/Not Resolved]
  - Hypotension [Not Recovered/Not Resolved]
  - Oesophagitis [Not Recovered/Not Resolved]
  - Atrial flutter [Not Recovered/Not Resolved]
  - Diarrhoea [Not Recovered/Not Resolved]
  - Nausea [Not Recovered/Not Resolved]
